FAERS Safety Report 15178837 (Version 8)
Quarter: 2021Q4

REPORT INFORMATION
  Report Type: Report from Study
  Country: CA (occurrence: CA)
  Receive Date: 20180722
  Receipt Date: 20211126
  Transmission Date: 20220303
  Serious: Yes (Other)
  Sender: FDA-Public Use
  Company Number: PHHY2018CA048835

PATIENT
  Age: 62 Year
  Sex: Female

DRUGS (2)
  1. GILENYA [Suspect]
     Active Substance: FINGOLIMOD HYDROCHLORIDE
     Indication: Relapsing-remitting multiple sclerosis
     Dosage: 0.5 MG
     Route: 048
     Dates: start: 20180611, end: 20181018
  2. PREDNISONE [Concomitant]
     Active Substance: PREDNISONE
     Indication: Product used for unknown indication
     Dosage: UNK
     Route: 065

REACTIONS (11)
  - Blood potassium increased [Recovering/Resolving]
  - Relapsing-remitting multiple sclerosis [Unknown]
  - Macular oedema [Recovered/Resolved with Sequelae]
  - Visual impairment [Unknown]
  - Vision blurred [Recovered/Resolved with Sequelae]
  - Multiple sclerosis relapse [Unknown]
  - Musculoskeletal stiffness [Unknown]
  - Temperature intolerance [Unknown]
  - Headache [Recovering/Resolving]
  - Retinal disorder [Unknown]
  - Stress [Unknown]

NARRATIVE: CASE EVENT DATE: 20181018
